FAERS Safety Report 8579453-3 (Version None)
Quarter: 2012Q3

REPORT INFORMATION
  Report Type: 
  Country: None (occurrence: None)
  Receive Date: 20120808
  Receipt Date: 20120803
  Transmission Date: 20120928
  Serious: Yes (Other)
  Sender: FDA-Public Use
  Company Number: US-GLAXOSMITHKLINE-A0842605A

PATIENT
  Age: 43 Year
  Sex: Male

DRUGS (5)
  1. SYNTHROID [Concomitant]
  2. ZYRTEC [Concomitant]
  3. ALBUTEROL [Concomitant]
  4. NASONEX [Concomitant]
  5. FLUTICASONE PROPIONATE [Suspect]
     Indication: ASTHMA
     Dosage: 1PUFF TWICE PER DAY
     Route: 055
     Dates: start: 20020101

REACTIONS (4)
  - COUGH [None]
  - PRODUCT QUALITY ISSUE [None]
  - ASTHMA [None]
  - NOCTURNAL DYSPNOEA [None]
